FAERS Safety Report 19171920 (Version 2)
Quarter: 2021Q2

REPORT INFORMATION
  Report Type: Spontaneous
  Country: JP (occurrence: JP)
  Receive Date: 20210423
  Receipt Date: 20210423
  Transmission Date: 20210717
  Serious: Yes (Congenital Anomaly, Other)
  Sender: FDA-Public Use
  Company Number: JP-NOVOPROD-804425

PATIENT
  Sex: Male
  Weight: 1.49 kg

DRUGS (13)
  1. NOVORAPID [Suspect]
     Active Substance: INSULIN ASPART
     Dosage: 70 IU
     Route: 064
  2. UTEMERIN [Concomitant]
     Active Substance: RITODRINE
     Indication: PRODUCT USED FOR UNKNOWN INDICATION
     Dosage: UNK
     Route: 064
  3. RITODRINE [Concomitant]
     Active Substance: RITODRINE
     Indication: PRODUCT USED FOR UNKNOWN INDICATION
     Dosage: 20 MG
     Route: 064
  4. LEVEMIR [Suspect]
     Active Substance: INSULIN DETEMIR
     Dosage: 12 IU
     Route: 064
  5. LEVEMIR [Suspect]
     Active Substance: INSULIN DETEMIR
     Dosage: 20 IU
     Route: 064
  6. LEVEMIR [Suspect]
     Active Substance: INSULIN DETEMIR
     Dosage: THE INSULIN DOSES WERE INCREASED AND UP TO ABOUT 100 UNITS/DAY
     Route: 064
  7. BETAMETHASONE. [Concomitant]
     Active Substance: BETAMETHASONE
     Indication: MATERNAL THERAPY TO ENHANCE FOETAL LUNG MATURITY
     Dosage: 12 MG
     Route: 064
  8. LEVEMIR [Suspect]
     Active Substance: INSULIN DETEMIR
     Indication: GESTATIONAL DIABETES
     Dosage: UNK
     Route: 064
  9. LEVEMIR [Suspect]
     Active Substance: INSULIN DETEMIR
     Dosage: 18 IU
     Route: 064
  10. NOVORAPID [Suspect]
     Active Substance: INSULIN ASPART
     Dosage: THE INSULIN DOSES WERE INCREASED AND UP TO ABOUT 100 UNITS/DAY
     Route: 064
  11. NOVORAPID [Suspect]
     Active Substance: INSULIN ASPART
     Indication: GESTATIONAL DIABETES
     Dosage: UNK
     Route: 064
  12. NOVORAPID [Suspect]
     Active Substance: INSULIN ASPART
     Dosage: 75 IU
     Route: 064
  13. NOVORAPID [Suspect]
     Active Substance: INSULIN ASPART
     Dosage: 65 IU
     Route: 064

REACTIONS (4)
  - Premature baby [Unknown]
  - Low birth weight baby [Unknown]
  - Foetal exposure during pregnancy [Recovered/Resolved]
  - Retinopathy of prematurity [Unknown]
